FAERS Safety Report 10020668 (Version 1)
Quarter: 2013Q4

REPORT INFORMATION
  Report Type: Spontaneous
  Country: US (occurrence: None)
  Receive Date: 20131125
  Receipt Date: 20131125
  Transmission Date: 20140711
  Serious: Yes (Hospitalization)
  Sender: FDA-Public Use
  Company Number: 2013-US-001626

PATIENT
  Age: 31 Year
  Sex: Male
  Weight: 86 kg

DRUGS (8)
  1. PRIALT [Suspect]
     Indication: PAIN
     Dosage: UNK,UG, QH, INTHRATHECAL
     Route: 037
     Dates: end: 20130909
  2. PRIALT [Suspect]
     Indication: RADICULITIS BRACHIAL
     Dosage: UNK,UG, QH, INTHRATHECAL
     Route: 037
     Dates: end: 20130909
  3. PRIALT [Suspect]
     Dosage: UNK,UG, QH, INTHRATHECAL
     Route: 037
     Dates: end: 20130909
  4. PRIALT [Suspect]
     Dosage: UNK,UG, QH, INTHRATHECAL
     Route: 037
     Dates: end: 20130909
  5. PRIALT [Suspect]
     Indication: POST LAMINECTOMY SYNDROME
     Dosage: UNK,UG, QH, INTHRATHECAL
     Route: 037
     Dates: end: 20130909
  6. PRIALT [Suspect]
     Dosage: UNK,UG, QH, INTHRATHECAL
     Route: 037
     Dates: end: 20130909
  7. SUBOXONE (BUPRENORPHINE HYDROCHLORIDE, NALOXONE HYDROCHLORIDE) [Concomitant]
  8. ATIVAN (LORAZEPAM) [Concomitant]

REACTIONS (13)
  - Pneumonia [None]
  - Mental status changes [None]
  - Delusion [None]
  - Hallucination, auditory [None]
  - Panic attack [None]
  - Confusional state [None]
  - Abnormal behaviour [None]
  - Tachycardia [None]
  - Back pain [None]
  - Therapeutic response decreased [None]
  - Paraesthesia [None]
  - Pain [None]
  - Urinary hesitation [None]
